FAERS Safety Report 8557391-X (Version None)
Quarter: 2012Q3

REPORT INFORMATION
  Report Type: 
  Country: None (occurrence: None)
  Receive Date: 20120720
  Receipt Date: 20120710
  Transmission Date: 20120928
  Serious: Yes (Hospitalization, Other)
  Sender: FDA-Public Use
  Company Number: AUR-APL-2012-02913

PATIENT
  Age: 56 Year
  Sex: Female

DRUGS (10)
  1. PREDNISONE TAB [Suspect]
     Indication: CHRONIC GRAFT VERSUS HOST DISEASE
     Dosage: 10 MG DAILY
  2. METRONIDAZOLE [Suspect]
     Indication: CLOSTRIDIUM TEST POSITIVE
     Dosage: 1500 MG (500 MG, 1 IN 8 HR), INTRAVENOUS
     Route: 042
  3. FLUCONAZOLE [Concomitant]
  4. VANCOMYCIN [Suspect]
     Indication: CLOSTRIDIUM TEST
     Dosage: 500 MG (125 MG, 4 IN 1 D), ORAL
     Route: 048
  5. ACYCLOVIR SODIUM [Concomitant]
  6. PENTAMIDINE ISETHIONATE [Suspect]
     Indication: PNEUMOCYSTIS JIROVECI INFECTION
     Dosage: (1 IN 28 D)
  7. LEVOFLOXACIN [Suspect]
     Indication: ANTIBIOTIC PROPHYLAXIS
     Dosage: 250 MG (250 MG, 1 IN 1 D)
  8. TRIMETHOPRIM + SULFAMETHOXAZOLE [Suspect]
     Indication: PROPHYLAXIS
     Dosage: INTRAVENOUS, ONE DOUBLE STRENGTH TABLET TWICE DAILY, EVERY MONDAY AND TUESDAY, ORAL
     Route: 040
  9. TRIMETHOPRIM + SULFAMETHOXAZOLE [Suspect]
     Indication: PNEUMOCYSTIS JIROVECI PNEUMONIA
     Dosage: INTRAVENOUS, ONE DOUBLE STRENGTH TABLET TWICE DAILY, EVERY MONDAY AND TUESDAY, ORAL
     Route: 040
  10. LINEZOLID [Suspect]
     Indication: URINARY TRACT INFECTION ENTEROCOCCAL
     Dosage: 1200 MG (600 MG, 2 IN 1 D)

REACTIONS (14)
  - PNEUMOCYSTIS JIROVECI PNEUMONIA [None]
  - HYPERCAPNIA [None]
  - RESPIRATORY FAILURE [None]
  - CLOSTRIDIAL INFECTION [None]
  - CONFUSIONAL STATE [None]
  - INTESTINAL MUCOSAL HYPERTROPHY [None]
  - MENTAL STATUS CHANGES [None]
  - RESPIRATORY MUSCLE WEAKNESS [None]
  - URINARY TRACT INFECTION ENTEROCOCCAL [None]
  - HYPOTENSION [None]
  - HYPOXIA [None]
  - BLOOD LACTIC ACID INCREASED [None]
  - TACHYCARDIA [None]
  - INTESTINAL DILATATION [None]
